FAERS Safety Report 23140012 (Version 1)
Quarter: 2023Q4

REPORT INFORMATION
  Report Type: Other
  Country: BR (occurrence: BR)
  Receive Date: 20231102
  Receipt Date: 20231102
  Transmission Date: 20240110
  Serious: No
  Sender: FDA-Public Use
  Company Number: BR-SCALL-2023-AMR-138451

PATIENT
  Sex: Female

DRUGS (2)
  1. DUTASTERIDE [Suspect]
     Active Substance: DUTASTERIDE
     Dosage: 0.5 MG
     Route: 065
  2. DUTASTERIDE\TAMSULOSIN [Suspect]
     Active Substance: DUTASTERIDE\TAMSULOSIN
     Route: 065

REACTIONS (1)
  - Product prescribing issue [Unknown]
